FAERS Safety Report 8184818-8 (Version None)
Quarter: 2012Q1

REPORT INFORMATION
  Report Type: 
  Country: None (occurrence: None)
  Receive Date: 20120305
  Receipt Date: 20120220
  Transmission Date: 20120608
  Serious: Yes (Life-Threatening, Hospitalization)
  Sender: FDA-Public Use
  Company Number: FR-GE HEALTHCARE MEDICAL DIAGNOSTICS-VISP-NO-1111S-0468

PATIENT
  Age: 60 Year
  Sex: Female

DRUGS (2)
  1. CORTIVASOL (ALTIM) [Suspect]
     Route: 008
     Dates: start: 20110311, end: 20110311
  2. VISIPAQUE [Suspect]
     Indication: PRODUCT USED FOR UNKNOWN INDICATION
     Route: 008
     Dates: start: 20110311, end: 20110311

REACTIONS (4)
  - TRANSIENT GLOBAL AMNESIA [None]
  - HYPERTENSION [None]
  - CONFUSIONAL STATE [None]
  - ISCHAEMIC STROKE [None]
